FAERS Safety Report 5078944-X (Version None)
Quarter: 2006Q3

REPORT INFORMATION
  Report Type: 
  Country: None (occurrence: None)
  Receive Date: 20060814
  Receipt Date: 20060804
  Transmission Date: 20061208
  Serious: Yes (Hospitalization)
  Sender: FDA-Public Use
  Company Number: FR-JNJFOC-20060801086

PATIENT
  Age: 58 Year
  Sex: Male
  Weight: 71 kg

DRUGS (11)
  1. DURAGESIC-100 [Suspect]
     Indication: CANCER PAIN
     Route: 062
  2. ACETYLCYSTEINE [Concomitant]
     Route: 065
  3. OMEPRAZOLE [Concomitant]
     Route: 065
  4. TERCIAN [Concomitant]
     Route: 065
  5. KALEORID [Concomitant]
     Route: 065
  6. AMLODIPINE BESYLATE [Concomitant]
     Route: 065
  7. FORADIL [Concomitant]
     Route: 065
  8. FLIXOTIDE [Concomitant]
     Route: 065
  9. EFFERALGAN CODEINE [Concomitant]
     Route: 065
  10. TRIMETAZIDINE [Concomitant]
     Route: 065
  11. AVANDAMET [Concomitant]
     Route: 065

REACTIONS (1)
  - ENCEPHALOPATHY [None]
